FAERS Safety Report 20758031 (Version 1)
Quarter: 2022Q2

REPORT INFORMATION
  Report Type: Spontaneous
  Country: US (occurrence: US)
  Receive Date: 20220427
  Receipt Date: 20220427
  Transmission Date: 20220720
  Serious: No
  Sender: FDA-Public Use
  Company Number: US-TAKEDA-2022TUS027566

PATIENT
  Sex: Female

DRUGS (5)
  1. NATPARA (PARATHYROID HORMONE) [Suspect]
     Active Substance: PARATHYROID HORMONE
     Indication: Hypocalcaemia
     Dosage: 75 MICROGRAM, QD
     Route: 065
  2. NATPARA (PARATHYROID HORMONE) [Suspect]
     Active Substance: PARATHYROID HORMONE
     Indication: Hypocalcaemia
     Dosage: 75 MICROGRAM, QD
     Route: 065
  3. NATPARA (PARATHYROID HORMONE) [Suspect]
     Active Substance: PARATHYROID HORMONE
     Indication: Hypocalcaemia
     Dosage: 75 MICROGRAM, QD
     Route: 065
  4. CALCITRIOL [Concomitant]
     Active Substance: CALCITRIOL
     Indication: Calcium deficiency
     Dosage: 1 MICROGRAM, QD
     Route: 065
  5. CALCIUM [Concomitant]
     Active Substance: CALCIUM
     Indication: Calcium deficiency
     Dosage: 3 DOSAGE FORM
     Route: 065

REACTIONS (1)
  - Blood calcium abnormal [Unknown]
